FAERS Safety Report 22386462 (Version 1)
Quarter: 2023Q2

REPORT INFORMATION
  Report Type: Spontaneous
  Country: PL (occurrence: PL)
  Receive Date: 20230531
  Receipt Date: 20230531
  Transmission Date: 20230721
  Serious: Yes (Hospitalization, Other)
  Sender: FDA-Public Use
  Company Number: PL-NOVOPROD-1066823

PATIENT
  Age: 28 Year
  Sex: Male
  Weight: 120 kg

DRUGS (2)
  1. NOVORAPID [Suspect]
     Active Substance: INSULIN ASPART
     Indication: Type 1 diabetes mellitus
     Dosage: 35 IU, QD (15 UNITS -BREAKFAST, 10 UNITS ? LUNCH, 10 - DINNER  PLUS CORRECTIONS IN CASE OF HYPERGLYC
     Route: 058
  2. INSULATARD NPH HUMAN [Suspect]
     Active Substance: INSULIN HUMAN
     Indication: Type 1 diabetes mellitus
     Dosage: 30 IU, QD
     Route: 058

REACTIONS (2)
  - Ketoacidosis [Recovered/Resolved]
  - Product dose omission in error [Unknown]
